FAERS Safety Report 9000100 (Version 3)
Quarter: 2014Q1

REPORT INFORMATION
  Report Type: Spontaneous
  Country: US (occurrence: US)
  Receive Date: 20130102
  Receipt Date: 20140314
  Transmission Date: 20141002
  Serious: Yes (Hospitalization)
  Sender: FDA-Public Use
  Company Number: US-JNJFOC-20121210681

PATIENT
  Age: 77 Year
  Sex: Female
  Weight: 63.73 kg

DRUGS (11)
  1. XARELTO [Suspect]
     Indication: ATRIAL FIBRILLATION
     Route: 048
     Dates: start: 20121126, end: 20121202
  2. XARELTO [Suspect]
     Indication: CEREBROVASCULAR ACCIDENT PROPHYLAXIS
     Route: 048
     Dates: start: 20121126, end: 20121202
  3. ASPIRIN [Suspect]
     Indication: ANTIPLATELET THERAPY
     Route: 065
  4. WARFARIN [Suspect]
     Indication: ANTICOAGULANT THERAPY
     Dosage: 2.5/5 MG ALTERNATING
     Route: 065
     Dates: start: 20100723, end: 20121126
  5. LISINOPRIL [Concomitant]
     Indication: BLOOD PRESSURE
     Route: 065
  6. SPIRONOLACTONE [Concomitant]
     Route: 065
  7. TRIAMTERENE HYDROCHLOROTHIAZIDE [Concomitant]
     Route: 065
  8. AMIODARONE HYDROCHLORIDE [Concomitant]
     Route: 065
  9. CARVEDILOL [Concomitant]
     Route: 065
  10. ZETIA [Concomitant]
     Route: 065
  11. CRESTOR [Concomitant]
     Route: 065

REACTIONS (6)
  - Epistaxis [Recovered/Resolved]
  - International normalised ratio increased [Recovered/Resolved]
  - Red blood cell count decreased [Recovered/Resolved]
  - Hypersensitivity [Not Recovered/Not Resolved]
  - Cough [Not Recovered/Not Resolved]
  - Malaise [Not Recovered/Not Resolved]
